FAERS Safety Report 6585336-0 (Version None)
Quarter: 2010Q2

REPORT INFORMATION
  Report Type: 
  Country: None (occurrence: None)
  Receive Date: 20100217
  Receipt Date: 20100209
  Transmission Date: 20101027
  Serious: Yes (Hospitalization)
  Sender: FDA-Public Use
  Company Number: US-JNJFOC-20100205674

PATIENT
  Age: 12 Year
  Sex: Female
  Weight: 35.38 kg

DRUGS (4)
  1. JUNIOR STRENGTH MOTRIN [Suspect]
     Indication: VOMITING
     Dosage: 2-3 TIMES A DAY ^OVER A FEW DAYS^
     Route: 048
  2. JUNIOR STRENGTH MOTRIN [Suspect]
     Indication: PYREXIA
     Dosage: 2-3 TIMES A DAY ^OVER A FEW DAYS^
     Route: 048
  3. JUNIOR STRENGTH MOTRIN [Suspect]
     Indication: INFLUENZA LIKE ILLNESS
     Dosage: 2-3 TIMES A DAY ^OVER A FEW DAYS^
     Route: 048
  4. ZOLOFT [Concomitant]
     Indication: ANXIETY

REACTIONS (5)
  - DEHYDRATION [None]
  - DIARRHOEA [None]
  - PNEUMONIA [None]
  - PRODUCT QUALITY ISSUE [None]
  - VOMITING [None]
